FAERS Safety Report 9792165 (Version 2)
Quarter: 2014Q2

REPORT INFORMATION
  Report Type: Spontaneous
  Country: US (occurrence: None)
  Receive Date: 20131230
  Receipt Date: 20140428
  Transmission Date: 20141212
  Serious: Yes (Hospitalization, Other)
  Sender: FDA-Public Use
  Company Number: KAD201312-001739

PATIENT
  Age: 24 Year
  Sex: Male
  Weight: 70.5 kg

DRUGS (19)
  1. RIBAVIRIN (RIBAVIRIN) [Suspect]
     Indication: CHRONIC HEPATITIS C
     Route: 048
     Dates: start: 20130619, end: 20131009
  2. GS-7977 [Suspect]
     Indication: CHRONIC HEPATITIS C
     Route: 048
     Dates: start: 20130619
  3. RIFAXAMIN (RIFAXAMIN) [Concomitant]
  4. LACTULOSE (LACTULOSE) [Concomitant]
  5. MAGNESIUM OXIDE (MAGNESIUM OXIDE) [Concomitant]
  6. MIRALAX (POLYETHYLENE GLUCOL) [Concomitant]
  7. PANTOPRAZOLE (PANTOPRAZOLE) [Concomitant]
  8. MICAFUNGIN 9MICAFUNGIN) [Concomitant]
  9. TACROLIMUS (TACROLIMUS) [Concomitant]
  10. MEROPENEM (METOPENEM) [Concomitant]
  11. OXYMETAZOLINE (OXYMETAZOLINE) [Concomitant]
  12. SIMETHICONE (SIMETHICONE) [Concomitant]
  13. OXYCODONE (OXYCODONE) [Concomitant]
  14. DARBAPOIETIN (DARBOPOIETIN) [Concomitant]
  15. DACLATASVIR [Suspect]
     Indication: CHRONIC HEPATITIS C
     Dates: start: 20130820
  16. SOFOABUVIR (SOFOABUVIR) [Concomitant]
  17. EPOETIN ALFA (EPOETIN ALFA) [Concomitant]
  18. SIMEPREVIR [Suspect]
     Route: 048
     Dates: start: 20131009
  19. OXYCONTIN (OXYCONTIN) [Concomitant]

REACTIONS (12)
  - Anaemia [None]
  - Torsade de pointes [None]
  - Renal failure acute [None]
  - Klebsiella infection [None]
  - Arthritis bacterial [None]
  - Candida infection [None]
  - Streptococcal bacteraemia [None]
  - Pleural effusion [None]
  - Bone marrow failure [None]
  - Electrocardiogram QT prolonged [None]
  - Fatigue [None]
  - Asthenia [None]
